FAERS Safety Report 10172561 (Version 3)
Quarter: 2014Q4

REPORT INFORMATION
  Report Type: Report from Study
  Country: JP (occurrence: JP)
  Receive Date: 20140515
  Receipt Date: 20141113
  Transmission Date: 20150528
  Serious: Yes (Death, Hospitalization)
  Sender: FDA-Public Use
  Company Number: JP-AMGEN-JPNCT2013091929

PATIENT
  Age: 76 Year
  Sex: Female
  Weight: 73 kg

DRUGS (24)
  1. NAPAGELN [Concomitant]
     Dosage: UNK
     Route: 061
  2. GASTER [Concomitant]
     Active Substance: FAMOTIDINE
     Dosage: UNK
     Route: 048
  3. PLETAAL [Concomitant]
     Active Substance: CILOSTAZOL
     Dosage: UNK
     Route: 048
  4. LAXOBERON [Concomitant]
     Active Substance: SODIUM PICOSULFATE
     Dosage: UNK
     Route: 048
  5. ALLEGRA [Concomitant]
     Active Substance: FEXOFENADINE HYDROCHLORIDE
     Dosage: UNK
     Route: 048
  6. LASIX [Concomitant]
     Active Substance: FUROSEMIDE
     Indication: DIABETIC NEPHROPATHY
     Dosage: UNK
     Route: 048
  7. MICARDIS [Concomitant]
     Active Substance: TELMISARTAN
     Indication: DIABETIC NEPHROPATHY
     Dosage: UNK
     Route: 048
  8. CARDENALIN [Concomitant]
     Active Substance: DOXAZOSIN MESYLATE
     Indication: DIABETIC NEPHROPATHY
     Dosage: UNK
     Route: 048
  9. NOVORAPID [Concomitant]
     Active Substance: INSULIN ASPART
     Dosage: UNK
     Route: 065
  10. PREDONINE [Concomitant]
     Active Substance: PREDNISOLONE\PREDNISOLONE ACETATE\PREDNISOLONE SODIUM SUCCINATE
     Dosage: UNK
     Route: 048
  11. AMLODIN [Concomitant]
     Active Substance: AMLODIPINE BESYLATE
     Indication: DIABETIC NEPHROPATHY
     Dosage: UNK
     Route: 048
  12. LASIX [Concomitant]
     Active Substance: FUROSEMIDE
     Indication: DIABETIC NEPHROPATHY
     Dosage: UNK
     Route: 048
  13. PURSENNIDE                         /00571901/ [Concomitant]
     Dosage: UNK
     Route: 048
  14. BAYASPIRIN [Concomitant]
     Active Substance: ASPIRIN
     Dosage: UNK
     Route: 048
  15. PARIET [Concomitant]
     Active Substance: RABEPRAZOLE SODIUM
     Dosage: UNK
     Route: 048
  16. SENNA [Concomitant]
     Active Substance: SENNA LEAF\SENNOSIDES\SENNOSIDES A AND B
     Dosage: UNK
     Route: 048
  17. DAIKENCHUTO [Concomitant]
     Active Substance: HERBALS
     Dosage: UNK
     Route: 048
  18. GASMOTIN [Concomitant]
     Active Substance: MOSAPRIDE CITRATE
     Dosage: UNK
     Route: 048
  19. DARBEPOETIN ALFA - KHK [Suspect]
     Active Substance: DARBEPOETIN ALFA
     Indication: NEPHROGENIC ANAEMIA
     Dosage: 120 MUG, QD
     Route: 040
     Dates: start: 20111221, end: 20131023
  20. RESTAMIN                           /00000401/ [Concomitant]
     Dosage: UNK
     Route: 061
  21. FEBURIC [Concomitant]
     Active Substance: FEBUXOSTAT
     Dosage: UNK
     Route: 048
  22. ANTEBATE [Concomitant]
     Active Substance: BETAMETHASONE DIPROPIONATE
     Dosage: UNK
     Route: 061
  23. MINOCYCLINE HYDROCHLORIDE. [Concomitant]
     Active Substance: MINOCYCLINE HYDROCHLORIDE
     Dosage: UNK
     Route: 048
  24. FULMETA [Concomitant]
     Active Substance: MOMETASONE
     Dosage: UNK
     Route: 061

REACTIONS (3)
  - Myocardial infarction [Fatal]
  - Cardiac failure [Recovering/Resolving]
  - Pemphigoid [Recovering/Resolving]

NARRATIVE: CASE EVENT DATE: 20120410
